FAERS Safety Report 22118457 (Version 1)
Quarter: 2023Q1

REPORT INFORMATION
  Report Type: Spontaneous
  Country: US (occurrence: US)
  Receive Date: 20230321
  Receipt Date: 20230321
  Transmission Date: 20230418
  Serious: No
  Sender: FDA-Public Use
  Company Number: US-SA-SAC20230317001216

PATIENT
  Age: 47 Year
  Sex: Male

DRUGS (1)
  1. DUPIXENT [Suspect]
     Active Substance: DUPILUMAB
     Indication: Dermatitis atopic
     Dosage: 300 MG, QOW
     Route: 058
     Dates: start: 202105

REACTIONS (6)
  - Fall [Unknown]
  - Pain [Unknown]
  - Rotator cuff syndrome [Unknown]
  - Blood pressure abnormal [Unknown]
  - Skin exfoliation [Unknown]
  - Dizziness [Unknown]

NARRATIVE: CASE EVENT DATE: 20230307
